FAERS Safety Report 22313569 (Version 2)
Quarter: 2023Q2

REPORT INFORMATION
  Report Type: Spontaneous
  Country: GR (occurrence: GR)
  Receive Date: 20230512
  Receipt Date: 20230529
  Transmission Date: 20230722
  Serious: Yes (Hospitalization, Other)
  Sender: FDA-Public Use
  Company Number: GR-009507513-2305GRC003508

PATIENT
  Age: 75 Year
  Sex: Male

DRUGS (1)
  1. KEYTRUDA [Suspect]
     Active Substance: PEMBROLIZUMAB
     Indication: Non-small cell lung cancer
     Dosage: 200 MG FLAT DOSE

REACTIONS (3)
  - Dysphagia [Unknown]
  - Autoimmune hepatitis [Unknown]
  - Autoimmune colitis [Unknown]
